FAERS Safety Report 13536939 (Version 2)
Quarter: 2017Q2

REPORT INFORMATION
  Report Type: Report from Study
  Country: US (occurrence: US)
  Receive Date: 20170511
  Receipt Date: 20170519
  Transmission Date: 20170830
  Serious: Yes (Death, Other)
  Sender: FDA-Public Use
  Company Number: PHEH2017US013814

PATIENT
  Age: 75 Year
  Sex: Female

DRUGS (1)
  1. VOTRIENT [Suspect]
     Active Substance: PAZOPANIB HYDROCHLORIDE
     Indication: METASTATIC RENAL CELL CARCINOMA
     Dosage: UNK
     Route: 065
     Dates: start: 20151112

REACTIONS (8)
  - Respiratory arrest [Fatal]
  - Septic shock [Fatal]
  - Lactic acidosis [Unknown]
  - Bradycardia [Unknown]
  - Generalised tonic-clonic seizure [Fatal]
  - Acute myocardial infarction [Unknown]
  - Device related infection [Fatal]
  - Renal failure [Unknown]

NARRATIVE: CASE EVENT DATE: 20170406
